FAERS Safety Report 7407811-9 (Version None)
Quarter: 2011Q2

REPORT INFORMATION
  Report Type: 
  Country: None (occurrence: None)
  Receive Date: 20110412
  Receipt Date: 20110401
  Transmission Date: 20111010
  Serious: Yes (Hospitalization)
  Sender: FDA-Public Use
  Company Number: PHHY2011JP17538

PATIENT
  Sex: Male
  Weight: 50 kg

DRUGS (12)
  1. NORVASC [Concomitant]
     Indication: HYPERTENSION
     Dosage: 2.5 MG, UNK
     Route: 048
     Dates: start: 20101022
  2. WARFARIN [Concomitant]
     Dosage: 5 MG, UNK
     Route: 048
     Dates: start: 20101023
  3. VALSARTAN [Suspect]
     Indication: HYPERTENSION
     Dosage: 80 MG, QD
     Route: 048
     Dates: start: 20090113
  4. WARFARIN [Concomitant]
     Dosage: 4.5 MG, UNK
     Route: 048
  5. GASMOTIN [Concomitant]
     Dosage: 15 MG, UNK
     Route: 048
     Dates: start: 20101102
  6. AMLODIN [Concomitant]
     Dosage: 2.5 MG, UNK
     Route: 048
     Dates: end: 20101021
  7. RADICUT [Concomitant]
     Dosage: 60 MG, UNK
     Dates: start: 20101019, end: 20101101
  8. TAKEPRON [Concomitant]
     Dosage: 15 MG, UNK
     Route: 048
     Dates: start: 20101027
  9. WARFARIN [Concomitant]
     Dosage: 3 MG, UNK
     Route: 048
  10. WARFARIN [Concomitant]
     Dosage: 4 MG, UNK
     Route: 048
  11. PLETAL [Concomitant]
     Dosage: 50 MG, UNK
     Route: 048
     Dates: start: 20101023, end: 20101025
  12. AMLODIN [Concomitant]
     Indication: HYPERTENSION
     Dosage: 5 MG, UNK
     Route: 048
     Dates: start: 20090127

REACTIONS (5)
  - CEREBRAL INFARCTION [None]
  - GASTRITIS [None]
  - MONOPLEGIA [None]
  - ABASIA [None]
  - GAIT DISTURBANCE [None]
